FAERS Safety Report 6436781-5 (Version None)
Quarter: 2009Q4

REPORT INFORMATION
  Report Type: 
  Country: None (occurrence: None)
  Receive Date: 20091103
  Receipt Date: 20091016
  Transmission Date: 20100525
  Serious: Yes (Hospitalization)
  Sender: FDA-Public Use
  Company Number: GAM-153-09-AU

PATIENT
  Age: 36 Year
  Sex: Male
  Weight: 93 kg

DRUGS (5)
  1. OCTAGAM 5%               (HUMAN NORMAL IMMUNOGLOBULIN FOR IV) [Suspect]
     Indication: KIDNEY TRANSPLANT REJECTION
     Dosage: 90 G I.V.
     Route: 042
     Dates: start: 20090619, end: 20090619
  2. PRAZOSIN HYDROCHLORIDE [Concomitant]
  3. METOPROLOL TARTRATE [Concomitant]
  4. METHYLDOPA [Concomitant]
  5. ZANIDIP (LERCANIDIPINE) [Concomitant]

REACTIONS (3)
  - ARTERIOVENOUS FISTULA THROMBOSIS [None]
  - RENAL ARTERY THROMBOSIS [None]
  - RENAL INFARCT [None]
